FAERS Safety Report 24837390 (Version 1)
Quarter: 2025Q1

REPORT INFORMATION
  Report Type: Spontaneous
  Country: US (occurrence: US)
  Receive Date: 20250113
  Receipt Date: 20250113
  Transmission Date: 20250409
  Serious: Yes (Hospitalization, Other)
  Sender: PFIZER
  Company Number: US-PFIZER INC-202300201276

PATIENT
  Age: 77 Year
  Sex: Male

DRUGS (10)
  1. VYNDAMAX [Suspect]
     Active Substance: TAFAMIDIS
     Indication: Cardiac disorder
     Dosage: 61 MG, DAILY
  2. VYNDAMAX [Suspect]
     Active Substance: TAFAMIDIS
     Indication: Hyperventilation
  3. ELIQUIS [Concomitant]
     Active Substance: APIXABAN
     Indication: Cardiac disorder
     Dosage: TAKES IT MORNING AND EVENING
  4. ATORVASTATIN [Concomitant]
     Active Substance: ATORVASTATIN
     Indication: Blood pressure abnormal
  5. ATORVASTATIN [Concomitant]
     Active Substance: ATORVASTATIN
  6. ATORVASTATIN [Concomitant]
     Active Substance: ATORVASTATIN
     Dosage: TAKES ONE TABLET MY MOUTH ONCE DAILY
     Route: 048
  7. MELATONIN [Concomitant]
     Active Substance: MELATONIN
     Indication: Poor quality sleep
  8. OMEPRAZOLE [Concomitant]
     Active Substance: OMEPRAZOLE
  9. HYDROCHLORIC ACID [Concomitant]
     Active Substance: HYDROCHLORIC ACID
     Dosage: ONE TABLET BY MOUTH OTHER DAY
  10. LASIX [Concomitant]
     Active Substance: FUROSEMIDE
     Dosage: TAKES JUST ONE TABLET A DAY

REACTIONS (6)
  - Cardiac failure [Unknown]
  - Pulmonary oedema [Unknown]
  - Bladder cancer [Unknown]
  - Product dispensing error [Unknown]
  - Circumstance or information capable of leading to medication error [Unknown]
  - Product dose omission issue [Unknown]
